FAERS Safety Report 6241957-6 (Version None)
Quarter: 2009Q2

REPORT INFORMATION
  Report Type: 
  Country: None (occurrence: None)
  Receive Date: 20090622
  Receipt Date: 20090604
  Transmission Date: 20091009
  Serious: Yes (Other)
  Sender: FDA-Public Use
  Company Number: 2008AL005374

PATIENT
  Sex: Male

DRUGS (3)
  1. DIGOXIN [Suspect]
     Dosage: 0.125MG, PO
     Route: 048
     Dates: start: 20070801, end: 20080401
  2. ASACOL [Concomitant]
  3. CLOTRIMAZOLE [Concomitant]

REACTIONS (2)
  - INJURY [None]
  - OVERDOSE [None]
